FAERS Safety Report 9201038 (Version 3)
Quarter: 2016Q2

REPORT INFORMATION
  Report Type: Spontaneous
  Country: JP (occurrence: JP)
  Receive Date: 20130401
  Receipt Date: 20160530
  Transmission Date: 20160815
  Serious: Yes (Hospitalization, Other)
  Sender: FDA-Public Use
  Company Number: JP-JNJFOC-20130315193

PATIENT
  Age: 55 Year
  Sex: Male
  Weight: 68 kg

DRUGS (9)
  1. BRUFEN [Concomitant]
     Active Substance: IBUPROFEN
     Indication: PREMEDICATION
     Route: 048
  2. HEPARINOID [Concomitant]
     Active Substance: CHONDROITIN SULFATE (BOVINE)
     Indication: PSORIASIS
     Dosage: 051
     Route: 065
  3. RINDERON VG [Concomitant]
     Active Substance: BETAMETHASONE VALERATE\GENTAMICIN SULFATE
     Indication: PSORIASIS
     Route: 065
  4. REMICADE [Suspect]
     Active Substance: INFLIXIMAB
     Indication: PSORIASIS
     Dosage: FIRST DOSE
     Route: 042
     Dates: start: 20100324
  5. ISCOTIN [Concomitant]
     Active Substance: ISONIAZID
     Indication: ANTIBIOTIC PROPHYLAXIS
     Route: 048
     Dates: start: 20100303, end: 20110303
  6. ALESION [Concomitant]
     Active Substance: EPINASTINE HYDROCHLORIDE
     Indication: PREMEDICATION
     Route: 048
  7. REMICADE [Suspect]
     Active Substance: INFLIXIMAB
     Indication: PSORIASIS
     Dosage: 16TH DOSE
     Route: 042
     Dates: start: 20121205
  8. OXAROL [Concomitant]
     Active Substance: MAXACALCITOL
     Indication: PSORIASIS
     Route: 065
  9. BETAMETHASONE SODIUM PHOSPHATE [Concomitant]
     Active Substance: BETAMETHASONE SODIUM PHOSPHATE
     Indication: PSORIASIS
     Route: 065

REACTIONS (3)
  - Antinuclear antibody increased [Unknown]
  - Interstitial lung disease [Not Recovered/Not Resolved]
  - Cell marker increased [Not Recovered/Not Resolved]

NARRATIVE: CASE EVENT DATE: 20121010
